FAERS Safety Report 11366033 (Version 3)
Quarter: 2015Q3

REPORT INFORMATION
  Report Type: Report from Study
  Country: US (occurrence: US)
  Receive Date: 20150811
  Receipt Date: 20150928
  Transmission Date: 20151125
  Serious: Yes (Hospitalization, Other)
  Sender: FDA-Public Use
  Company Number: US-BAYER-2014-128077

PATIENT
  Age: 75 Year
  Sex: Female
  Weight: 81.63 kg

DRUGS (13)
  1. LETAIRIS [Concomitant]
     Active Substance: AMBRISENTAN
  2. ADEMPAS [Suspect]
     Active Substance: RIOCIGUAT
     Indication: PULMONARY HYPERTENSION
     Dosage: 2 MG, TID
     Route: 048
  3. COUMADIN [Concomitant]
     Active Substance: WARFARIN SODIUM
  4. ADEMPAS [Suspect]
     Active Substance: RIOCIGUAT
     Indication: PULMONARY HYPERTENSION
     Dosage: 2 MG, TID
     Route: 048
     Dates: start: 20140529
  5. ADEMPAS [Suspect]
     Active Substance: RIOCIGUAT
     Indication: PULMONARY HYPERTENSION
     Dosage: 1 MG, TID
     Route: 048
  6. ADEMPAS [Suspect]
     Active Substance: RIOCIGUAT
     Indication: PULMONARY HYPERTENSION
     Dosage: 2 MG, TID
     Route: 048
     Dates: start: 20141024
  7. XARELTO [Concomitant]
     Active Substance: RIVAROXABAN
     Dosage: UNK
  8. TYVASO [Suspect]
     Active Substance: TREPROSTINIL
  9. ADEMPAS [Suspect]
     Active Substance: RIOCIGUAT
     Indication: PULMONARY HYPERTENSION
     Dosage: 0.5 MG, TID
     Route: 048
     Dates: start: 20140729
  10. ADEMPAS [Suspect]
     Active Substance: RIOCIGUAT
     Indication: PULMONARY HYPERTENSION
     Dosage: 2 MG, TID (SHIPPED 09-SEP-2015)
     Route: 048
  11. ADEMPAS [Suspect]
     Active Substance: RIOCIGUAT
     Indication: PULMONARY HYPERTENSION
     Dosage: 2 MG, TID
     Route: 048
     Dates: start: 20140730
  12. ADEMPAS [Suspect]
     Active Substance: RIOCIGUAT
     Indication: PULMONARY HYPERTENSION
     Dosage: 2 MG, TID (SHIPPED 13-JUL-2015)
     Route: 048
  13. LOVENOX [Concomitant]
     Active Substance: ENOXAPARIN SODIUM

REACTIONS (30)
  - Fatigue [Unknown]
  - Asthenia [Unknown]
  - Dyspnoea [Unknown]
  - Dizziness [None]
  - Heart rate abnormal [None]
  - Pulmonary arterial hypertension [None]
  - Chest discomfort [None]
  - Dyspnoea [None]
  - Epistaxis [Unknown]
  - Transfusion [None]
  - Anaemia [Unknown]
  - Blood pressure decreased [Unknown]
  - Walking distance test abnormal [None]
  - Joint swelling [Unknown]
  - Haemoglobin decreased [Unknown]
  - Headache [Unknown]
  - Transfusion [Unknown]
  - Haemorrhage [Unknown]
  - Hypotension [Unknown]
  - Dizziness exertional [None]
  - Abdominal pain [Recovered/Resolved]
  - Intestinal perforation [Unknown]
  - Gastrointestinal haemorrhage [None]
  - Dizziness postural [Unknown]
  - Blood pressure systolic decreased [None]
  - Hypoxia [None]
  - Dyspnoea exertional [Unknown]
  - Tinnitus [None]
  - Blood test abnormal [Unknown]
  - Mineral supplementation [Unknown]

NARRATIVE: CASE EVENT DATE: 2014
